FAERS Safety Report 23062244 (Version 2)
Quarter: 2023Q4

REPORT INFORMATION
  Report Type: Spontaneous
  Country: US (occurrence: US)
  Receive Date: 20231013
  Receipt Date: 20231201
  Transmission Date: 20240110
  Serious: Yes (Hospitalization, Other)
  Sender: FDA-Public Use
  Company Number: US-BRISTOL-MYERS SQUIBB COMPANY-2023-143890

PATIENT
  Age: 59 Year
  Sex: Male

DRUGS (4)
  1. LENALIDOMIDE [Suspect]
     Active Substance: LENALIDOMIDE
     Indication: Plasma cell myeloma
     Dosage: TAKE 1 CAPSULE BY MOUTH ONCE DAILY ON DAYS 1-14 EVERY 21 DAYS
     Route: 048
     Dates: start: 20230509
  2. LENALIDOMIDE [Suspect]
     Active Substance: LENALIDOMIDE
     Dosage: TAKE 1 CAPSULE BY MOUTH EVERY DAY ON DAYS 1-21 EVERY 28 ?DAYS
     Route: 048
     Dates: start: 20230525
  3. POMALYST [Suspect]
     Active Substance: POMALIDOMIDE
     Indication: Product used for unknown indication
  4. KYPROLIS [Suspect]
     Active Substance: CARFILZOMIB
     Indication: Product used for unknown indication

REACTIONS (9)
  - Drug ineffective [Recovered/Resolved]
  - Neuropathy peripheral [Unknown]
  - Renal disorder [Unknown]
  - Pyrexia [Unknown]
  - Decreased appetite [Unknown]
  - Fatigue [Unknown]
  - Pain [Unknown]
  - Plasma cell myeloma recurrent [Unknown]
  - Off label use [Unknown]
